FAERS Safety Report 9283181 (Version 10)
Quarter: 2014Q2

REPORT INFORMATION
  Report Type: Report from Study
  Country: MX (occurrence: MX)
  Receive Date: 20130510
  Receipt Date: 20140522
  Transmission Date: 20141212
  Serious: Yes (Death)
  Sender: FDA-Public Use
  Company Number: MX-ROCHE-1223296

PATIENT
  Age: 64 Year
  Sex: Male
  Weight: 59 kg

DRUGS (4)
  1. VEMURAFENIB [Suspect]
     Indication: MALIGNANT MELANOMA
     Dosage: ON 06/MAY/2013, THE PATIENT HAD LAST DOSE PRIOR TO SAE.
     Route: 048
     Dates: start: 20121219, end: 20130507
  2. CINITAPRIDE [Concomitant]
     Route: 065
     Dates: start: 20121220
  3. TRAMADOL [Concomitant]
     Route: 065
     Dates: start: 201210
  4. GABAPENTIN [Concomitant]
     Route: 065
     Dates: start: 201210

REACTIONS (1)
  - Myxoid liposarcoma [Fatal]
